FAERS Safety Report 23601182 (Version 1)
Quarter: 2024Q1

REPORT INFORMATION
  Report Type: Spontaneous
  Country: US (occurrence: None)
  Receive Date: 20240306
  Receipt Date: 20240306
  Transmission Date: 20240410
  Serious: No
  Sender: FDA-Public Use
  Company Number: 2024A032451

PATIENT
  Sex: Female

DRUGS (2)
  1. FARXIGA [Suspect]
     Active Substance: DAPAGLIFLOZIN PROPANEDIOL
     Indication: Type 2 diabetes mellitus
     Route: 048
     Dates: start: 202309
  2. FARXIGA [Suspect]
     Active Substance: DAPAGLIFLOZIN PROPANEDIOL
     Indication: Chronic kidney disease
     Route: 048
     Dates: start: 202309

REACTIONS (11)
  - Pain [Unknown]
  - Discomfort [Not Recovered/Not Resolved]
  - Glomerular filtration rate abnormal [Unknown]
  - Confusional state [Unknown]
  - Glycosylated haemoglobin increased [Unknown]
  - Blood urea increased [Unknown]
  - Blood creatinine increased [Unknown]
  - Blood glucose fluctuation [Unknown]
  - Back pain [Unknown]
  - Product dose omission issue [Unknown]
  - Off label use [Unknown]
